FAERS Safety Report 7132401-5 (Version None)
Quarter: 2010Q4

REPORT INFORMATION
  Report Type: 
  Country: None (occurrence: None)
  Receive Date: 20101202
  Receipt Date: 20101122
  Transmission Date: 20110411
  Serious: Yes (Hospitalization)
  Sender: FDA-Public Use
  Company Number: JP-NAPPMUNDI-GBR-2010-0007216

PATIENT
  Age: 70 Year
  Sex: Male

DRUGS (2)
  1. THEOPHYLLINE [Suspect]
     Indication: PRODUCT USED FOR UNKNOWN INDICATION
     Dosage: 400 MG, DAILY
     Route: 065
  2. LOSARTAN [Concomitant]
     Dosage: 50 MG, DAILY
     Route: 065

REACTIONS (3)
  - CONVULSION [None]
  - PLEOCYTOSIS [None]
  - PYREXIA [None]
